FAERS Safety Report 14492218 (Version 2)
Quarter: 2018Q1

REPORT INFORMATION
  Report Type: Spontaneous
  Country: PL (occurrence: PL)
  Receive Date: 20180206
  Receipt Date: 20180213
  Transmission Date: 20180509
  Serious: Yes (Hospitalization, Other)
  Sender: FDA-Public Use
  Company Number: PL-PFIZER INC-2018044860

PATIENT
  Age: 39 Year
  Sex: Male

DRUGS (7)
  1. ACETYLSALICYLIC ACID [Suspect]
     Active Substance: ASPIRIN
     Indication: ANTICOAGULANT THERAPY
     Dosage: 150 MG, 1X/DAY
  2. METOPROLOL. [Suspect]
     Active Substance: METOPROLOL
     Indication: ARRHYTHMIA
     Dosage: 25 MG, 1X/DAY
  3. DABIGATRAN [Suspect]
     Active Substance: DABIGATRAN
     Indication: ATRIAL FIBRILLATION
     Dosage: 150 MG, 2X/DAY, FOR 8 WEEKS
  4. PROPAFENONE. [Suspect]
     Active Substance: PROPAFENONE
     Indication: ARRHYTHMIA
     Dosage: 150 MG, 3X/DAY
  5. AMLODIPINA + LISINOPRIL [Suspect]
     Active Substance: AMLODIPINE BESYLATE\LISINOPRIL
     Indication: ATRIAL FIBRILLATION
     Dosage: ONE TABLET IN THE MORNING AND HALF TABLET IN EVENING
  6. ATORVASTATIN CALCIUM. [Suspect]
     Active Substance: ATORVASTATIN CALCIUM
     Indication: ATRIAL FIBRILLATION
     Dosage: 40 MG, 1 TABLET IN THE EVENING
  7. BISOPROLOL [Suspect]
     Active Substance: BISOPROLOL
     Indication: ATRIAL FIBRILLATION
     Dosage: 1 DF, 1X/DAY

REACTIONS (6)
  - Muscular weakness [Recovered/Resolved]
  - Speech disorder [Recovered/Resolved]
  - Transient ischaemic attack [Unknown]
  - Drug effect incomplete [Unknown]
  - Epistaxis [Recovered/Resolved]
  - Facial asymmetry [Recovered/Resolved]
